FAERS Safety Report 6558877-X (Version None)
Quarter: 2010Q1

REPORT INFORMATION
  Report Type: 
  Country: None (occurrence: None)
  Receive Date: 20100129
  Receipt Date: 20100119
  Transmission Date: 20100710
  Serious: Yes (Death, Hospitalization)
  Sender: FDA-Public Use
  Company Number: US-BAXTER-2010BH000635

PATIENT
  Age: 60 Year
  Sex: Male

DRUGS (4)
  1. DIANEAL [Suspect]
     Indication: PERITONEAL DIALYSIS
     Route: 033
     Dates: start: 20091013, end: 20091202
  2. DIANEAL [Suspect]
     Route: 033
     Dates: start: 20040201, end: 20091006
  3. DIANEAL [Suspect]
     Indication: PERITONEAL DIALYSIS
     Route: 033
     Dates: start: 20091006, end: 20091013
  4. DIANEAL [Suspect]
     Route: 033
     Dates: start: 20091202, end: 20091204

REACTIONS (2)
  - ARTERIAL STENOSIS [None]
  - DEATH [None]
